FAERS Safety Report 7190150-1 (Version None)
Quarter: 2010Q4

REPORT INFORMATION
  Report Type: 
  Country: None (occurrence: None)
  Receive Date: 20101223
  Receipt Date: 20100723
  Transmission Date: 20110411
  Serious: No
  Sender: FDA-Public Use
  Company Number: US-MYLANLABS-2010S1013533

PATIENT
  Sex: Female

DRUGS (3)
  1. TRAMADOL [Suspect]
  2. DEPAKOTE [Interacting]
     Indication: BORDERLINE PERSONALITY DISORDER
  3. CITALOPRAM HYDROBROMIDE [Interacting]
     Indication: BORDERLINE PERSONALITY DISORDER

REACTIONS (4)
  - ANXIETY [None]
  - DRUG EFFECT DECREASED [None]
  - DRUG INTERACTION [None]
  - PARANOIA [None]
